FAERS Safety Report 16174714 (Version 4)
Quarter: 2019Q3

REPORT INFORMATION
  Report Type: Spontaneous
  Country: US (occurrence: US)
  Receive Date: 20190409
  Receipt Date: 20190823
  Transmission Date: 20191004
  Serious: No
  Sender: FDA-Public Use
  Company Number: US-BAUSCH-BL-2019-010163

PATIENT
  Age: 71 Year
  Sex: Female
  Weight: 40.86 kg

DRUGS (9)
  1. MOVIPREP [Suspect]
     Active Substance: ASCORBIC ACID\POLYETHYLENE GLYCOL 3350\POTASSIUM CHLORIDE\SODIUM ASCORBATE\SODIUM CHLORIDE\SODIUM SULFATE
     Indication: BOWEL PREPARATION
     Route: 065
     Dates: start: 201808, end: 201808
  2. PREDNISONE. [Suspect]
     Active Substance: PREDNISONE
     Dosage: UNSPECIFIED AMOUNT.
     Route: 065
     Dates: start: 201908, end: 20190810
  3. MOVIPREP [Suspect]
     Active Substance: ASCORBIC ACID\POLYETHYLENE GLYCOL 3350\POTASSIUM CHLORIDE\SODIUM ASCORBATE\SODIUM CHLORIDE\SODIUM SULFATE
     Dosage: TWO-DAY (SPLIT-DOSE)
     Route: 048
     Dates: start: 20190806
  4. SUPREP BOWEL PREP [Suspect]
     Active Substance: MAGNESIUM SULFATE\POTASSIUM SULFATE\SODIUM SULFATE
     Indication: BOWEL PREPARATION
     Route: 065
  5. PREDNISONE. [Suspect]
     Active Substance: PREDNISONE
     Indication: SWOLLEN TONGUE
     Route: 065
     Dates: start: 20190807, end: 201908
  6. BENADRYL [Suspect]
     Active Substance: DIPHENHYDRAMINE HYDROCHLORIDE
     Indication: SWOLLEN TONGUE
     Dosage: OVER-THE-COUNTER
     Route: 065
     Dates: start: 20190807, end: 20190810
  7. PREDNISONE. [Suspect]
     Active Substance: PREDNISONE
     Indication: FLUSHING
     Route: 065
     Dates: start: 20190805, end: 201908
  8. BENADRYL [Suspect]
     Active Substance: DIPHENHYDRAMINE HYDROCHLORIDE
     Indication: FLUSHING
  9. ZANTAC [Concomitant]
     Active Substance: RANITIDINE HYDROCHLORIDE
     Indication: PRODUCT USED FOR UNKNOWN INDICATION
     Route: 048

REACTIONS (12)
  - Asthenia [Recovering/Resolving]
  - Hypersensitivity [Unknown]
  - Product quality issue [Unknown]
  - Product taste abnormal [Unknown]
  - Decreased appetite [Recovering/Resolving]
  - Flushing [Not Recovered/Not Resolved]
  - Vomiting [Recovering/Resolving]
  - Dehydration [Recovering/Resolving]
  - Swollen tongue [Recovering/Resolving]
  - Skin exfoliation [Recovering/Resolving]
  - Weight decreased [Recovering/Resolving]
  - Retching [Unknown]

NARRATIVE: CASE EVENT DATE: 201808
